FAERS Safety Report 7316476-6 (Version None)
Quarter: 2011Q1

REPORT INFORMATION
  Report Type: 
  Country: None (occurrence: None)
  Receive Date: 20110225
  Receipt Date: 20101213
  Transmission Date: 20110831
  Serious: Yes (Life-Threatening, Disabling)
  Sender: FDA-Public Use
  Company Number: US-BAYER-201040507NA

PATIENT
  Sex: Male

DRUGS (1)
  1. AVELOX [Suspect]
     Indication: SKIN INFECTION
     Route: 048
     Dates: start: 20101105, end: 20101105

REACTIONS (8)
  - WHEEZING [None]
  - PARAESTHESIA ORAL [None]
  - NAUSEA [None]
  - ANAPHYLACTIC REACTION [None]
  - COORDINATION ABNORMAL [None]
  - HYPOTENSION [None]
  - DYSPNOEA [None]
  - FLUSHING [None]
